FAERS Safety Report 5236003-7 (Version None)
Quarter: 2007Q1

REPORT INFORMATION
  Report Type: 
  Country: None (occurrence: None)
  Receive Date: 20061208
  Receipt Date: 20051214
  Transmission Date: 20070707
  Serious: Yes (Other)
  Sender: FDA-Public Use
  Company Number: 2005UW18721

PATIENT
  Age: 77 Year
  Sex: Male

DRUGS (9)
  1. CRESTOR [Suspect]
     Indication: BLOOD CHOLESTEROL INCREASED
     Dosage: 5 MG
  2. NAMENDA [Suspect]
     Indication: DEMENTIA ALZHEIMER'S TYPE
     Dosage: 5 MG DAILY PO
     Route: 048
     Dates: start: 20051017, end: 20051023
  3. NAMENDA [Suspect]
     Indication: DEMENTIA ALZHEIMER'S TYPE
     Dosage: 5 MG BID PO
     Route: 048
     Dates: start: 20051024, end: 20051030
  4. NAMENDA [Suspect]
     Indication: DEMENTIA ALZHEIMER'S TYPE
     Dosage: 15 MG DAILY PO
     Route: 048
     Dates: start: 20051031, end: 20051106
  5. NAMENDA [Suspect]
     Indication: DEMENTIA ALZHEIMER'S TYPE
     Dosage: 10 MG BID PO
     Route: 048
     Dates: start: 20051107
  6. ARICEPT [Suspect]
  7. FLUTAMIDE [Suspect]
     Dosage: 125 MG
  8. PENTOXIFYLLINE [Suspect]
     Dosage: 400 MG
  9. ECOTRIN [Suspect]
     Dosage: 325 MG

REACTIONS (4)
  - HYPERSOMNIA [None]
  - LETHARGY [None]
  - MEDICATION ERROR [None]
  - SPEECH DISORDER [None]
